FAERS Safety Report 9552981 (Version 1)
Quarter: 2013Q2

REPORT INFORMATION
  Report Type: Spontaneous
  Country: US (occurrence: None)
  Receive Date: 20130517
  Receipt Date: 20130517
  Transmission Date: 20140414
  Serious: Yes (Hospitalization, Other)
  Sender: FDA-Public Use
  Company Number: 2013PL000044

PATIENT
  Age: 41 Year
  Sex: Male

DRUGS (10)
  1. IMURAN (AZATHIOPRINE) [Suspect]
     Indication: PRODUCT USED FOR UNKNOWN INDICATION
  2. HUMIRA [Suspect]
     Indication: COLITIS ULCERATIVE
  3. LISINOPRIL [Concomitant]
  4. GABAPENTIN [Concomitant]
  5. TRAMADOL [Concomitant]
  6. BUPROPION [Concomitant]
  7. CELEBREX [Concomitant]
  8. RANITIDINE [Concomitant]
  9. ACETAMINOPHEN W/OXYCODONE [Concomitant]
  10. LASIX /00032601/ [Concomitant]

REACTIONS (8)
  - Colitis ulcerative [None]
  - Skin lesion [None]
  - Skin infection [None]
  - Staphylococcal infection [None]
  - Immunosuppression [None]
  - Injection site haematoma [None]
  - Pruritus [None]
  - Insomnia [None]
